FAERS Safety Report 17193985 (Version 2)
Quarter: 2020Q1

REPORT INFORMATION
  Report Type: Spontaneous
  Country: US (occurrence: US)
  Receive Date: 20191223
  Receipt Date: 20200108
  Transmission Date: 20200409
  Serious: Yes (Life-Threatening, Hospitalization)
  Sender: FDA-Public Use
  Company Number: US-TEVA-2019-US-1156617

PATIENT
  Age: 63 Year
  Sex: Female

DRUGS (5)
  1. OXALIPLATIN. [Suspect]
     Active Substance: OXALIPLATIN
     Indication: COLON CANCER METASTATIC
     Dosage: AS A PART OF FOLFOX; FORMULATION: INFUSION
     Route: 065
  2. 5-FLUOROURACIL [Concomitant]
     Active Substance: FLUOROURACIL
     Indication: COLON CANCER METASTATIC
     Dosage: AS A PART OF FOLFOX AND FOLFIRI; FORMULATION: INFUSION
     Route: 065
  3. LEUCOVORIN. [Concomitant]
     Active Substance: LEUCOVORIN
     Indication: COLON CANCER METASTATIC
     Dosage: AS A PART OF FOLFOX AND FOLFIRI; FORMULATION: INFUSION
     Route: 065
  4. IRINOTECAN [Suspect]
     Active Substance: IRINOTECAN
     Indication: COLON CANCER METASTATIC
     Dosage: AS A PART OF FOLFIRI; FORMULATION: INFUSION
     Route: 065
  5. CETUXIMAB. [Concomitant]
     Active Substance: CETUXIMAB
     Indication: COLON CANCER METASTATIC
     Route: 065

REACTIONS (4)
  - Rectal haemorrhage [Recovering/Resolving]
  - Melaena [Recovering/Resolving]
  - Immune thrombocytopenic purpura [Recovered/Resolved]
  - Haemoglobin decreased [Recovering/Resolving]
